FAERS Safety Report 5385168-5 (Version None)
Quarter: 2007Q3

REPORT INFORMATION
  Report Type: 
  Country: None (occurrence: None)
  Receive Date: 20070712
  Receipt Date: 20070712
  Transmission Date: 20080115
  Serious: Yes (Hospitalization, Other)
  Sender: FDA-Public Use
  Company Number: None

PATIENT
  Age: 4 Month
  Sex: Female
  Weight: 4.5 kg

DRUGS (7)
  1. CALCIUM GLUCONATE [Suspect]
     Indication: BLOOD CALCIUM DECREASED
     Dosage: (450 MG, ONCE), INTRAVENOUS
     Route: 042
     Dates: start: 20070605
  2. CALCIUM GLUCONATE [Suspect]
     Indication: BLOOD CALCIUM DECREASED
     Dosage: (450 MG, ONCE), INTRAVENOUS
     Route: 042
     Dates: start: 20070606
  3. CALCIUM GLUCONATE [Suspect]
     Indication: BLOOD CALCIUM DECREASED
     Dosage: (450 MG, ONCE), INTRAVENOUS
     Route: 042
     Dates: start: 20070607
  4. HYDROCORTISONE [Concomitant]
  5. CEFTRIAXONE [Concomitant]
  6. ATIVAN [Concomitant]
  7. CALCIUM CARBONATE (CALCIUM CARBONATE) [Concomitant]

REACTIONS (4)
  - HYPERCALCAEMIA [None]
  - INCORRECT DOSE ADMINISTERED [None]
  - MEDICATION ERROR [None]
  - OVERDOSE [None]
